FAERS Safety Report 24242243 (Version 1)
Quarter: 2024Q3

REPORT INFORMATION
  Report Type: Spontaneous
  Country: US (occurrence: US)
  Receive Date: 20240823
  Receipt Date: 20240823
  Transmission Date: 20241017
  Serious: No
  Sender: SLATE RUN
  Company Number: US-SLATERUN-2024SRSPO00141

PATIENT
  Sex: Male

DRUGS (2)
  1. PROMETHAZINE DM [Suspect]
     Active Substance: DEXTROMETHORPHAN HYDROBROMIDE\PROMETHAZINE HYDROCHLORIDE
     Indication: Cough
     Route: 048
     Dates: start: 20240217
  2. CODEINE [Concomitant]
     Active Substance: CODEINE
     Indication: Cough
     Route: 065

REACTIONS (1)
  - Drug ineffective [Unknown]
